FAERS Safety Report 25808884 (Version 1)
Quarter: 2025Q3

REPORT INFORMATION
  Report Type: Spontaneous
  Country: EU (occurrence: EU)
  Receive Date: 20250916
  Receipt Date: 20250916
  Transmission Date: 20251020
  Serious: Yes (Hospitalization)
  Sender: MYLAN
  Company Number: None

PATIENT
  Age: 76 Year
  Sex: Male
  Weight: 69 kg

DRUGS (3)
  1. POMALIDOMIDE [Suspect]
     Active Substance: POMALIDOMIDE
     Indication: Plasma cell myeloma
     Dosage: 4 MILLIGRAM, QD,FOR 21 DAYS PER MONTH
     Dates: start: 20241108
  2. KYPROLIS [Suspect]
     Active Substance: CARFILZOMIB
     Indication: Plasma cell myeloma
     Dates: start: 20241108
  3. DEXAMETHASONE ACETATE [Concomitant]
     Active Substance: DEXAMETHASONE ACETATE

REACTIONS (1)
  - Renal-limited thrombotic microangiopathy [Not Recovered/Not Resolved]
